FAERS Safety Report 17365599 (Version 3)
Quarter: 2024Q2

REPORT INFORMATION
  Report Type: Other
  Country: US (occurrence: None)
  Receive Date: 20200204
  Receipt Date: 20240511
  Transmission Date: 20240716
  Serious: Yes (Hospitalization, Other)
  Sender: FDA-Public Use
  Company Number: US-ROCHE-2472502

PATIENT
  Age: 70 Year
  Sex: Female
  Weight: 88.076 kg

DRUGS (20)
  1. ACTEMRA [Suspect]
     Active Substance: TOCILIZUMAB
     Indication: Giant cell arteritis
     Route: 058
     Dates: start: 2019, end: 20191112
  2. ACTEMRA [Suspect]
     Active Substance: TOCILIZUMAB
     Indication: Giant cell arteritis
  3. PREDNISONE [Suspect]
     Active Substance: PREDNISONE
     Indication: Giant cell arteritis
     Route: 048
     Dates: start: 201905
  4. PREDNISONE [Suspect]
     Active Substance: PREDNISONE
     Dosage: DAILY FOR 5 WEEKS
     Route: 048
     Dates: start: 20180917
  5. PREDNISONE [Suspect]
     Active Substance: PREDNISONE
     Route: 048
  6. PREDNISONE [Suspect]
     Active Substance: PREDNISONE
     Route: 048
     Dates: start: 2019
  7. PREDNISONE [Suspect]
     Active Substance: PREDNISONE
     Dosage: ONGOING: NO ?UNKNOWN TAPER DOSE LESS THAN 40 MG
     Route: 048
  8. PREDNISONE [Suspect]
     Active Substance: PREDNISONE
     Dosage: ONGOING: YES
     Route: 048
     Dates: start: 2019
  9. SYNTHROID [Concomitant]
     Active Substance: LEVOTHYROXINE SODIUM
     Indication: Hypothyroidism
     Dosage: 112 MCG
     Route: 048
  10. DULOXETINE [Concomitant]
     Active Substance: DULOXETINE
     Indication: Fibromyalgia
     Route: 048
     Dates: start: 1997
  11. DULOXETINE [Concomitant]
     Active Substance: DULOXETINE
     Indication: Depression
  12. OMEPRAZOLE [Concomitant]
     Active Substance: DONEPEZIL HYDROCHLORIDE\OMEPRAZOLE\OMEPRAZOLE MAGNESIUM
     Indication: Gastrooesophageal reflux disease
     Route: 048
     Dates: start: 1990
  13. ATORVASTATIN [Concomitant]
     Active Substance: ATORVASTATIN
     Indication: Blood cholesterol increased
     Route: 065
     Dates: start: 2016
  14. PREMARIN [Concomitant]
     Active Substance: ESTROGENS, CONJUGATED
     Indication: Oestrogen replacement therapy
     Route: 048
  15. FERROUS SULFATE [Concomitant]
     Active Substance: FERROUS SULFATE
     Indication: Blood iron
  16. GABAPENTIN [Concomitant]
     Active Substance: GABAPENTIN
     Indication: Pain
     Route: 048
     Dates: start: 20191116
  17. TYLENOL [Concomitant]
     Active Substance: ACETAMINOPHEN
     Indication: Pain
     Dosage: ONGOING: YES, AS NEEDED
     Route: 065
  18. RIZATRIPTAN [Concomitant]
     Active Substance: RIZATRIPTAN
     Indication: Migraine
     Dosage: 10 MG THEN ANOTHER 10 MG IF NEEDED IN 2 HOURS; ONGOING: YES
     Route: 048
     Dates: start: 1999
  19. TRAZODONE [Concomitant]
     Active Substance: TRAZODONE HYDROCHLORIDE
     Indication: Insomnia
     Dosage: ONCE AT NIGHT
     Route: 048
     Dates: start: 2005
  20. VERAPAMIL [Concomitant]
     Active Substance: VERAPAMIL HYDROCHLORIDE
     Route: 048

REACTIONS (30)
  - Arthritis infective [Not Recovered/Not Resolved]
  - Knee arthroplasty [Unknown]
  - Cellulitis [Unknown]
  - Thrombosis [Recovered/Resolved]
  - Gastrointestinal infection [Recovered/Resolved]
  - Immunodeficiency [Not Recovered/Not Resolved]
  - Arthralgia [Recovered/Resolved]
  - Anxiety [Not Recovered/Not Resolved]
  - Transient ischaemic attack [Not Recovered/Not Resolved]
  - Candida infection [Recovering/Resolving]
  - Migraine [Not Recovered/Not Resolved]
  - Mouth swelling [Recovering/Resolving]
  - Oropharyngeal blistering [Recovering/Resolving]
  - Dysphagia [Recovering/Resolving]
  - Hypophagia [Recovering/Resolving]
  - Hypertension [Recovering/Resolving]
  - Swelling [Recovering/Resolving]
  - Dyspepsia [Not Recovered/Not Resolved]
  - Diplopia [Not Recovered/Not Resolved]
  - Haemorrhoids [Not Recovered/Not Resolved]
  - Anorectal swelling [Not Recovered/Not Resolved]
  - Back pain [Not Recovered/Not Resolved]
  - Pain of skin [Not Recovered/Not Resolved]
  - Pain in jaw [Not Recovered/Not Resolved]
  - Visual impairment [Not Recovered/Not Resolved]
  - Contusion [Not Recovered/Not Resolved]
  - Skin laceration [Not Recovered/Not Resolved]
  - Amnesia [Not Recovered/Not Resolved]
  - Drug hypersensitivity [Unknown]
  - Illness [Unknown]

NARRATIVE: CASE EVENT DATE: 20190101
